FAERS Safety Report 19889680 (Version 1)
Quarter: 2021Q3

REPORT INFORMATION
  Report Type: Spontaneous
  Country: PT (occurrence: PT)
  Receive Date: 20210927
  Receipt Date: 20210927
  Transmission Date: 20211014
  Serious: Yes (Other)
  Sender: FDA-Public Use
  Company Number: PT-MYLANLABS-2021M1065565

PATIENT
  Age: 55 Year
  Sex: Male

DRUGS (1)
  1. IMATINIB. [Suspect]
     Active Substance: IMATINIB MESYLATE
     Indication: CHEMOTHERAPY
     Dosage: 400 MILLIGRAM, QD
     Route: 065

REACTIONS (3)
  - Hypoxia [Unknown]
  - Shock [Unknown]
  - Rash [Unknown]
